FAERS Safety Report 21844150 (Version 3)
Quarter: 2023Q2

REPORT INFORMATION
  Report Type: Report from Study
  Country: CA (occurrence: CA)
  Receive Date: 20230110
  Receipt Date: 20230502
  Transmission Date: 20230722
  Serious: Yes (Hospitalization, Other)
  Sender: FDA-Public Use
  Company Number: CA-AMGEN-CANSL2022105025

PATIENT
  Age: 68 Year
  Sex: Male

DRUGS (3)
  1. AVSOLA [Suspect]
     Active Substance: INFLIXIMAB-AXXQ
     Indication: Crohn^s disease
     Dosage: 1000 MILLIGRAM, Q4WK
     Route: 065
     Dates: start: 20220416
  2. AVSOLA [Suspect]
     Active Substance: INFLIXIMAB-AXXQ
     Dosage: 1000 MILLIGRAM, Q4WK
     Route: 065
  3. AVSOLA [Suspect]
     Active Substance: INFLIXIMAB-AXXQ
     Dosage: 700 MILLIGRAM, Q4WK
     Route: 065

REACTIONS (9)
  - Renal failure [Unknown]
  - Urethritis [Unknown]
  - Pyelonephritis [Unknown]
  - Necrosis [Unknown]
  - Prostatomegaly [Unknown]
  - Off label use [Unknown]
  - Localised infection [Unknown]
  - Peripheral vascular disorder [Unknown]
  - Wound [Unknown]

NARRATIVE: CASE EVENT DATE: 20220416
